FAERS Safety Report 6749314-0 (Version None)
Quarter: 2010Q2

REPORT INFORMATION
  Report Type: 
  Country: None (occurrence: None)
  Receive Date: 20100601
  Receipt Date: 20100525
  Transmission Date: 20101027
  Serious: Yes (Life-Threatening, Hospitalization)
  Sender: FDA-Public Use
  Company Number: DE-ROCHE-594966

PATIENT
  Age: 26 Year
  Sex: Female
  Weight: 70 kg

DRUGS (4)
  1. ROCEPHIN [Suspect]
     Indication: DRUG USE FOR UNKNOWN INDICATION
     Dosage: REPORTED AS: SINGLE DOSE WERE DIFFERENT
     Route: 042
     Dates: start: 20080904, end: 20080911
  2. CYMEVENE [Suspect]
     Indication: ENCEPHALITIS HERPES
     Dosage: REPORTED AS: NUMBER OF SINGLE DOSE WERE DIFFERENT, MINIMAL AMOUNT WAS 350 MG
     Route: 042
     Dates: start: 20080906, end: 20080911
  3. ACYCLOVIR SODIUM [Suspect]
     Indication: ENCEPHALITIS HERPES
     Dosage: REPORTED AS: NUMBER OF SINGLE DOSE DIFFERENT, MINIMAL DOSAGE WAS 750 MG
     Route: 042
     Dates: start: 20080904, end: 20080907
  4. TRAMAL [Suspect]
     Indication: DRUG USE FOR UNKNOWN INDICATION
     Route: 048
     Dates: start: 20080910, end: 20080910

REACTIONS (2)
  - LONG QT SYNDROME [None]
  - TORSADE DE POINTES [None]
